FAERS Safety Report 11110035 (Version 1)
Quarter: 2015Q2

REPORT INFORMATION
  Report Type: Report from Study
  Country: US (occurrence: US)
  Receive Date: 20150513
  Receipt Date: 20150513
  Transmission Date: 20150821
  Serious: Yes (Other)
  Sender: FDA-Public Use
  Company Number: PHEH2014US001905

PATIENT
  Sex: Male
  Weight: 69.84 kg

DRUGS (9)
  1. ZOFRAN [Concomitant]
     Active Substance: ONDANSETRON HYDROCHLORIDE
     Indication: PRODUCT USED FOR UNKNOWN INDICATION
     Dosage: 1 DF, THREE TIMES DAILY PRN
     Route: 065
  2. VICODIN [Concomitant]
     Active Substance: ACETAMINOPHEN\HYDROCODONE BITARTRATE
     Indication: PRODUCT USED FOR UNKNOWN INDICATION
     Dosage: 1 DF,EVERY SIX HOURS PRN
     Route: 065
  3. GLEEVEC [Suspect]
     Active Substance: IMATINIB MESYLATE
     Indication: PRODUCT USED FOR UNKNOWN INDICATION
     Dosage: 400 MG, QD
     Route: 065
  4. COMBIVENT RESPIMAT [Concomitant]
     Active Substance: ALBUTEROL SULFATE\IPRATROPIUM BROMIDE
     Indication: PRODUCT USED FOR UNKNOWN INDICATION
     Dosage: FOUR TIME DAILY PRN
     Route: 055
  5. PREDNISONE. [Concomitant]
     Active Substance: PREDNISONE
     Indication: PRODUCT USED FOR UNKNOWN INDICATION
     Dosage: 1 DF, DAILY
     Route: 065
  6. GLEEVEC [Suspect]
     Active Substance: IMATINIB MESYLATE
     Dosage: 200 MG, BID (100MG 2 TABLETS BID)
     Route: 048
  7. PHENERGAN [Concomitant]
     Active Substance: PROMETHAZINE HYDROCHLORIDE
     Indication: PRODUCT USED FOR UNKNOWN INDICATION
     Dosage: 1 DF, EVERY SIX HOURS PRN
     Route: 065
  8. HYDROCODONE/ACETAMINOPHEN [Concomitant]
     Active Substance: ACETAMINOPHEN\HYDROCODONE
     Indication: PRODUCT USED FOR UNKNOWN INDICATION
     Dosage: 5/325 MG 1 DF EVERY 6 HOURS
     Route: 065
  9. GLEEVEC [Suspect]
     Active Substance: IMATINIB MESYLATE
     Dosage: 100 MG, QD
     Route: 048

REACTIONS (20)
  - Anaemia [Unknown]
  - Gout [Unknown]
  - Aortic valve incompetence [Unknown]
  - Nephrolithiasis [Unknown]
  - Abdominal pain [Unknown]
  - Weight decreased [Unknown]
  - Aortic stenosis [Unknown]
  - Toxicity to various agents [Unknown]
  - Haematuria [Unknown]
  - Vomiting [Unknown]
  - Hypertension [Unknown]
  - Wrong technique in drug usage process [Unknown]
  - Pruritus [Not Recovered/Not Resolved]
  - Weight increased [Unknown]
  - Dysphagia [Unknown]
  - Drug intolerance [Unknown]
  - Cardiac murmur [Unknown]
  - Left ventricular hypertrophy [Unknown]
  - Macrocytosis [Unknown]
  - Fatigue [Unknown]

NARRATIVE: CASE EVENT DATE: 2013
